FAERS Safety Report 5056897-8 (Version None)
Quarter: 2006Q3

REPORT INFORMATION
  Report Type: 
  Country: None (occurrence: None)
  Receive Date: 20060721
  Receipt Date: 20060215
  Transmission Date: 20061208
  Serious: Yes (Hospitalization)
  Sender: FDA-Public Use
  Company Number: DEWYE020206FEB06

PATIENT
  Sex: Female
  Weight: 77 kg

DRUGS (2)
  1. ENBREL [Suspect]
     Indication: ANKYLOSING SPONDYLITIS
     Route: 058
     Dates: start: 20050923, end: 20060101
  2. PREDNISOLONE [Concomitant]
     Indication: RHEUMATOID ARTHRITIS
     Route: 048
     Dates: start: 20040801

REACTIONS (3)
  - DERMATITIS ALLERGIC [None]
  - ENCEPHALITIS [None]
  - HEPATIC STEATOSIS [None]
